FAERS Safety Report 16915248 (Version 1)
Quarter: 2019Q4

REPORT INFORMATION
  Report Type: Spontaneous
  Country: US (occurrence: US)
  Receive Date: 20191012
  Receipt Date: 20191012
  Transmission Date: 20200122
  Serious: Yes (Hospitalization)
  Sender: FDA-Public Use
  Company Number: None

PATIENT
  Age: 70 Year
  Sex: Female
  Weight: 65.4 kg

DRUGS (1)
  1. CAPECITABINE. [Suspect]
     Active Substance: CAPECITABINE
     Indication: CHOLANGIOCARCINOMA
     Dosage: ?          OTHER FREQUENCY:BID X14/21D CYCLE;?
     Route: 048
     Dates: start: 20190926

REACTIONS (7)
  - Nausea [None]
  - Hypoxia [None]
  - Back pain [None]
  - Asthenia [None]
  - Abdominal pain [None]
  - Bedridden [None]
  - Hypophagia [None]

NARRATIVE: CASE EVENT DATE: 20190927
